FAERS Safety Report 5863539-8 (Version None)
Quarter: 2008Q3

REPORT INFORMATION
  Report Type: 
  Country: None (occurrence: None)
  Receive Date: 20080828
  Receipt Date: 20080822
  Transmission Date: 20090109
  Serious: No
  Sender: FDA-Public Use
  Company Number: US-BOEHRINGER INGELHEIM GMBH, GERMANY-2008-BP-11699BP

PATIENT
  Sex: Male

DRUGS (12)
  1. SPIRIVA [Suspect]
     Indication: CHRONIC OBSTRUCTIVE PULMONARY DISEASE
     Route: 055
  2. PAXIL [Concomitant]
     Route: 048
  3. CRESTOR [Concomitant]
     Route: 048
  4. SINGULAIR [Concomitant]
     Route: 048
  5. XOPENEX [Concomitant]
  6. IMDUR [Concomitant]
  7. ATIVAN [Concomitant]
  8. ASPIRIN [Concomitant]
  9. ZESTRIL [Concomitant]
  10. ALBUTEROL [Concomitant]
  11. AMARYL [Concomitant]
     Indication: DIABETES MELLITUS
  12. TOPROL-XL [Concomitant]

REACTIONS (1)
  - DRUG INEFFECTIVE [None]
